FAERS Safety Report 21453514 (Version 4)
Quarter: 2022Q4

REPORT INFORMATION
  Report Type: Spontaneous
  Country: US (occurrence: US)
  Receive Date: 20221013
  Receipt Date: 20221102
  Transmission Date: 20230112
  Serious: Yes (Hospitalization)
  Sender: FDA-Public Use
  Company Number: US-PFIZER INC-202201212780

PATIENT
  Age: 35 Year
  Sex: Female
  Weight: 68.49 kg

DRUGS (1)
  1. CIBINQO [Suspect]
     Active Substance: ABROCITINIB
     Indication: Neurodermatitis
     Dosage: 200 MG, 1X/DAY
     Route: 048
     Dates: start: 20220831

REACTIONS (11)
  - Condition aggravated [Unknown]
  - Peripheral swelling [Unknown]
  - Swelling face [Unknown]
  - Lip swelling [Unknown]
  - Swelling [Unknown]
  - Skin swelling [Unknown]
  - Skin ulcer [Unknown]
  - Off label use [Unknown]
  - Neutrophil count increased [Unknown]
  - Platelet count increased [Unknown]
  - White blood cell count increased [Unknown]

NARRATIVE: CASE EVENT DATE: 20220101
